FAERS Safety Report 7554774-1 (Version None)
Quarter: 2011Q2

REPORT INFORMATION
  Report Type: 
  Country: None (occurrence: None)
  Receive Date: 20110617
  Receipt Date: 20110615
  Transmission Date: 20111010
  Serious: Yes (Hospitalization, Other)
  Sender: FDA-Public Use
  Company Number: CH-BRISTOL-MYERS SQUIBB COMPANY-15342629

PATIENT
  Age: 37 Year
  Sex: Male

DRUGS (3)
  1. AKINETON [Concomitant]
  2. LAMICTAL [Suspect]
     Dosage: USING FROM LAST 9 MONTHS.
     Route: 048
  3. ABILIFY [Suspect]
     Indication: HALLUCINATION, AUDITORY
     Dosage: 20MG(05MAY10)DOSE REDUCED:10MG/D:6-19MAY10;;5MG:20-30MAY10;10MG:31MAY10; 20MG:1-9JUN10 10MG:10JUN10
     Route: 048
     Dates: start: 20080101

REACTIONS (7)
  - AGGRESSION [None]
  - CHILLS [None]
  - IRRITABILITY [None]
  - MOVEMENT DISORDER [None]
  - SCHIZOAFFECTIVE DISORDER [None]
  - HALLUCINATION [None]
  - EXTRAPYRAMIDAL DISORDER [None]
